FAERS Safety Report 8836505 (Version 1)
Quarter: 2012Q4

REPORT INFORMATION
  Report Type: 
  Country: US (occurrence: US)
  Receive Date: 20121011
  Receipt Date: 20121011
  Transmission Date: 20130627
  Serious: No
  Sender: FDA-Public Use
  Company Number: US-ASTRAZENECA-2011SE52076

PATIENT
  Age: 81 Year
  Sex: Female

DRUGS (3)
  1. TOPROL XL [Suspect]
     Route: 048
  2. TOPROL XL [Suspect]
     Route: 048
  3. CRESTOR [Suspect]
     Route: 048

REACTIONS (5)
  - Back disorder [Unknown]
  - Limb discomfort [Unknown]
  - Gait disturbance [Unknown]
  - Movement disorder [Unknown]
  - Oedema peripheral [Recovered/Resolved]
